FAERS Safety Report 9465786 (Version 3)
Quarter: 2013Q4

REPORT INFORMATION
  Report Type: Spontaneous
  Country: US (occurrence: US)
  Receive Date: 20130820
  Receipt Date: 20131226
  Transmission Date: 20140711
  Serious: Yes (Other)
  Sender: FDA-Public Use
  Company Number: US-PFIZER INC-2013240439

PATIENT
  Age: 77 Year
  Sex: Male

DRUGS (3)
  1. NEURONTIN [Suspect]
     Indication: NEURALGIA
     Dosage: UNK
  2. NEURONTIN [Suspect]
     Dosage: 300 MG, 3X/DAY
     Dates: start: 201302
  3. PERCOCET [Concomitant]
     Dosage: UNK

REACTIONS (10)
  - Impaired driving ability [Recovering/Resolving]
  - Exercise tolerance decreased [Recovering/Resolving]
  - Activities of daily living impaired [Recovering/Resolving]
  - Nerve injury [Unknown]
  - Somnolence [Recovering/Resolving]
  - Sedation [Unknown]
  - Myalgia [Recovering/Resolving]
  - Gait disturbance [Recovering/Resolving]
  - Tremor [Recovering/Resolving]
  - Fatigue [Recovering/Resolving]
